FAERS Safety Report 6508005-1 (Version None)
Quarter: 2009Q4

REPORT INFORMATION
  Report Type: 
  Country: None (occurrence: None)
  Receive Date: 20091210
  Receipt Date: 20090924
  Transmission Date: 20100525
  Serious: Yes (Other)
  Sender: FDA-Public Use
  Company Number: CIP09002000

PATIENT
  Sex: Female

DRUGS (20)
  1. ACTONEL [Suspect]
     Indication: BONE DISORDER
     Dosage: 150 MG ONE DOSE ONLY, ORAL
     Route: 048
     Dates: start: 20090602, end: 20090602
  2. COZAAR [Concomitant]
  3. GABAPENTIN [Concomitant]
  4. SINGULAIR /01362601/ (MONTELUKAST) [Concomitant]
  5. ALBUTEROL /00139501/ (SALBUTAMOL) [Concomitant]
  6. NITROFURANT MACRO (NITROFURANTOIN) [Concomitant]
  7. CYMBALTA [Concomitant]
  8. MELOXICAM [Concomitant]
  9. HYDROCODONE BITARTRATE AND ACETAMINOPHEN (HYDROCODONE BITARTRATE, PARA [Concomitant]
  10. ONE-A-DAY WOMEN'S (ACACIA SENEGAL, ASCORBIC ACID, BETACAROTENE, CALCIU [Concomitant]
  11. NEXIUM [Concomitant]
  12. CALTRATE /00108001/ (CALCIUM CARBONATE) [Concomitant]
  13. CENTRUM SILVER /01292501/ (ASCORBIC ACID, CALCIUM MINERALS NOS, RETINO [Concomitant]
  14. BENADRYL [Concomitant]
  15. FIBERCON /00567701/ (POLYCARBOPHIL) [Concomitant]
  16. ENABLEX /01760401/ (DARIFENACIN) [Concomitant]
  17. CRANBERRY /01512301/ (VACCINIUM MACROCARPON) [Concomitant]
  18. CLONAZEPAM [Concomitant]
  19. JANUMET (METFORMIN HYDROCHLORIDE, SITAGLIPTIN PHOSPHATE) [Concomitant]
  20. PATANOL [Concomitant]

REACTIONS (7)
  - ARTHRALGIA [None]
  - BACK PAIN [None]
  - CHEST PAIN [None]
  - CONDITION AGGRAVATED [None]
  - GAIT DISTURBANCE [None]
  - PAIN [None]
  - PAIN IN EXTREMITY [None]
